FAERS Safety Report 19077100 (Version 1)
Quarter: 2021Q1

REPORT INFORMATION
  Report Type: Spontaneous
  Country: CN (occurrence: CN)
  Receive Date: 20210331
  Receipt Date: 20210331
  Transmission Date: 20210420
  Serious: Yes (Other)
  Sender: FDA-Public Use
  Company Number: CN-AMGEN-CHNSP2021046783

PATIENT
  Age: 68 Year
  Sex: Male

DRUGS (2)
  1. GRAN [Suspect]
     Active Substance: FILGRASTIM
     Indication: PANCYTOPENIA
     Dosage: UNK
     Route: 065
  2. G?LASTA [Suspect]
     Active Substance: PEGFILGRASTIM
     Indication: PANCYTOPENIA
     Dosage: UNK
     Route: 065

REACTIONS (1)
  - Acute promyelocytic leukaemia [Recovered/Resolved]
